FAERS Safety Report 9354262 (Version 1)
Quarter: 2013Q2

REPORT INFORMATION
  Report Type: Other
  Country: JP (occurrence: JP)
  Receive Date: 20130618
  Receipt Date: 20130618
  Transmission Date: 20140414
  Serious: Yes (Death, Other)
  Sender: FDA-Public Use
  Company Number: JP-ACTELION-A-CH2013-84401

PATIENT
  Age: 55 Year
  Sex: Female

DRUGS (6)
  1. TRACLEER [Suspect]
     Indication: PULMONARY HYPERTENSION
     Dosage: 250 MG, QD
     Route: 048
  2. TRACLEER [Suspect]
     Dosage: 62.5 MG, QD
     Route: 048
     Dates: start: 200910
  3. SILDENAFIL [Suspect]
     Dosage: 80 MG, QD
     Dates: start: 200910
  4. BERAPROST SODIUM [Suspect]
     Dosage: 240 ?G, UNK
  5. CYCLOPHOSPHAMIDE [Concomitant]
  6. NITRIC OXIDE [Concomitant]

REACTIONS (7)
  - Respiratory failure [Fatal]
  - Interstitial lung disease [Fatal]
  - Pneumonia [Unknown]
  - Pneumothorax [Unknown]
  - Dyspnoea [Unknown]
  - Hypoxia [Unknown]
  - General physical health deterioration [Fatal]
